FAERS Safety Report 26115484 (Version 1)
Quarter: 2025Q4

REPORT INFORMATION
  Report Type: Report from Study
  Country: CA (occurrence: CA)
  Receive Date: 20251203
  Receipt Date: 20251203
  Transmission Date: 20260118
  Serious: Yes (Other)
  Sender: SAMSUNG BIOEPIS
  Company Number: CA-SAMSUNG BIOEPIS-SB-2025-39994

PATIENT
  Age: 5 Year
  Sex: Male

DRUGS (1)
  1. RENFLEXIS [Suspect]
     Active Substance: INFLIXIMAB-ABDA
     Indication: Colitis ulcerative
     Route: 042
     Dates: start: 20250425

REACTIONS (6)
  - Croup infectious [Recovered/Resolved]
  - Haematochezia [Not Recovered/Not Resolved]
  - Conjunctivitis [Recovered/Resolved]
  - Abdominal pain [Not Recovered/Not Resolved]
  - Pallor [Not Recovered/Not Resolved]
  - Product use issue [Unknown]

NARRATIVE: CASE EVENT DATE: 20251105
